FAERS Safety Report 19767594 (Version 1)
Quarter: 2021Q3

REPORT INFORMATION
  Report Type: Spontaneous
  Country: US (occurrence: US)
  Receive Date: 20210827
  Receipt Date: 20210827
  Transmission Date: 20211014
  Serious: Yes (Hospitalization)
  Sender: FDA-Public Use
  Company Number: None

PATIENT
  Sex: Female

DRUGS (3)
  1. PIQRAY [Suspect]
     Active Substance: ALPELISIB
     Indication: BREAST CANCER FEMALE
     Route: 048
     Dates: start: 20210602
  2. PIQRAY [Suspect]
     Active Substance: ALPELISIB
     Indication: METASTASES TO LIVER
     Route: 048
     Dates: start: 20210602
  3. PIQRAY [Suspect]
     Active Substance: ALPELISIB
     Indication: METASTASES TO BONE
     Route: 048
     Dates: start: 20210602

REACTIONS (3)
  - Weight decreased [None]
  - Blood glucose increased [None]
  - Dyspepsia [None]
